FAERS Safety Report 7904910-X (Version None)
Quarter: 2011Q4

REPORT INFORMATION
  Report Type: 
  Country: None (occurrence: None)
  Receive Date: 20111109
  Receipt Date: 20111108
  Transmission Date: 20120403
  Serious: Yes (Death)
  Sender: FDA-Public Use
  Company Number: US-PFIZER INC-2011223929

PATIENT
  Sex: Male

DRUGS (5)
  1. COREG [Concomitant]
     Dosage: 3.125 UNK, TWICE A DAY
  2. DIGOXIN [Concomitant]
     Dosage: 0.25 UNK, DAILY
  3. TIKOSYN [Suspect]
     Dosage: 250 UG, ALTERNATE DAY
     Route: 048
     Dates: start: 20070101, end: 20071015
  4. MAGNESIUM OXIDE [Concomitant]
  5. AMIODARONE [Concomitant]
     Dosage: 200 MG, 1X/DAY
     Dates: start: 20070929

REACTIONS (1)
  - DEATH [None]
